FAERS Safety Report 7531859-7 (Version None)
Quarter: 2011Q2

REPORT INFORMATION
  Report Type: 
  Country: None (occurrence: None)
  Receive Date: 20110608
  Receipt Date: 20110527
  Transmission Date: 20111010
  Serious: Yes (Hospitalization, Other)
  Sender: FDA-Public Use
  Company Number: RU-BAYER-2011-007908

PATIENT
  Age: 35 Year
  Sex: Female

DRUGS (4)
  1. YAZ [Suspect]
     Indication: CONTRACEPTION
     Dosage: 1 DF, ONCE
     Route: 048
     Dates: start: 20100301
  2. ULTRAVIST 150 [Suspect]
  3. NO-SPA [Suspect]
     Dosage: 80 MG, BID
  4. ULTRAVIST 150 [Suspect]
     Indication: FISTULOGRAM
     Dosage: UNK
     Dates: start: 20110504, end: 20110504

REACTIONS (11)
  - TREMOR [None]
  - PELVIC FLUID COLLECTION [None]
  - ABDOMINAL PAIN UPPER [None]
  - PANCREATIC DISORDER [None]
  - HEPATIC ADENOMA [None]
  - EPIGASTRIC DISCOMFORT [None]
  - BODY TEMPERATURE INCREASED [None]
  - CHILLS [None]
  - PANCREATIC CYST [None]
  - HAEMANGIOMA OF LIVER [None]
  - FLUID RETENTION [None]
